FAERS Safety Report 7557153-6 (Version None)
Quarter: 2011Q2

REPORT INFORMATION
  Report Type: 
  Country: None (occurrence: None)
  Receive Date: 20110616
  Receipt Date: 20110616
  Transmission Date: 20111010
  Serious: Yes (Hospitalization)
  Sender: FDA-Public Use
  Company Number: None

PATIENT
  Age: 89 Year
  Sex: Male
  Weight: 68 kg

DRUGS (16)
  1. PRAVASTATIN [Concomitant]
  2. OMEPRAZOLE [Concomitant]
  3. VALSARTAN [Concomitant]
  4. PRIMIDONE [Concomitant]
  5. ASPIRIN [Concomitant]
  6. FLUTICASONE/SALMETEROL [Concomitant]
  7. ALBUTEROL SULFATE AND IPRATROPIUM BROMIDE [Concomitant]
  8. FUROSEMIDE [Concomitant]
  9. METOLAZONE [Concomitant]
  10. DIGOXIN [Concomitant]
  11. NITROGLYCERIN [Concomitant]
  12. CARVEDILOL [Concomitant]
  13. WARFARIN SODIUM [Suspect]
     Indication: ATRIAL FIBRILLATION
     Dosage: 2.5 MG/ 5 MG 5 DAYS ALT W/2 DAYS PO (PRIOR TO ADMISSION)
     Route: 048
  14. POTASSIUM [Concomitant]
  15. PERCOCET [Concomitant]
  16. FLUTICASONE PROPIONATE [Concomitant]

REACTIONS (3)
  - CHEST PAIN [None]
  - HAEMATURIA [None]
  - INTERNATIONAL NORMALISED RATIO DECREASED [None]
